FAERS Safety Report 6969566-1 (Version None)
Quarter: 2010Q3

REPORT INFORMATION
  Report Type: 
  Country: None (occurrence: None)
  Receive Date: 20100907
  Receipt Date: 20100907
  Transmission Date: 20110219
  Serious: Yes (Death)
  Sender: FDA-Public Use
  Company Number: None

PATIENT
  Age: 46 Year
  Sex: Female
  Weight: 167.8309 kg

DRUGS (2)
  1. GEODON [Suspect]
     Indication: BIPOLAR DISORDER
     Dosage: 80 2 PO
     Route: 048
     Dates: start: 20010302, end: 20090618
  2. GEODON [Suspect]
     Indication: SCHIZOPHRENIA
     Dosage: 80 2 PO
     Route: 048
     Dates: start: 20010302, end: 20090618

REACTIONS (2)
  - DIABETES MELLITUS [None]
  - DIABETIC COMA [None]
